FAERS Safety Report 15260519 (Version 1)
Quarter: 2018Q3

REPORT INFORMATION
  Report Type: Spontaneous
  Country: US (occurrence: US)
  Receive Date: 20180719
  Receipt Date: 20180719
  Transmission Date: 20181010
  Serious: Yes (Life-Threatening, Hospitalization)
  Sender: FDA-Public Use
  Company Number: None

PATIENT
  Age: 81 Year
  Sex: Male
  Weight: 87.09 kg

DRUGS (1)
  1. SUCCINYLCHOLINE [Suspect]
     Active Substance: SUCCINYLCHOLINE
     Indication: PSEUDOCHOLINESTERASE DEFICIENCY
     Route: 042
     Dates: start: 20180214, end: 20180214

REACTIONS (3)
  - Delayed recovery from anaesthesia [None]
  - Pseudocholinesterase deficiency [None]
  - Asthenia [None]

NARRATIVE: CASE EVENT DATE: 20170214
